FAERS Safety Report 6582779-6 (Version None)
Quarter: 2010Q1

REPORT INFORMATION
  Report Type: 
  Country: None (occurrence: None)
  Receive Date: 20100216
  Receipt Date: 20100204
  Transmission Date: 20100710
  Serious: Yes (Hospitalization)
  Sender: FDA-Public Use
  Company Number: GB-PFIZER INC-2007094866

PATIENT
  Age: 63 Year
  Sex: Male

DRUGS (5)
  1. SUNITINIB MALATE [Suspect]
     Indication: RENAL CELL CARCINOMA
     Dosage: UNK
     Route: 048
     Dates: start: 20060630
  2. TAMSULOSIN [Concomitant]
     Route: 048
     Dates: start: 20010101
  3. LANSOPRAZOLE [Concomitant]
     Route: 048
     Dates: start: 20060426
  4. BENDROFLUAZIDE [Concomitant]
     Route: 048
     Dates: start: 20060719
  5. SILDENAFIL CITRATE [Concomitant]
     Route: 048
     Dates: start: 20061205

REACTIONS (1)
  - FACIAL PARESIS [None]
